FAERS Safety Report 18354322 (Version 1)
Quarter: 2020Q4

REPORT INFORMATION
  Report Type: Spontaneous
  Country: US (occurrence: US)
  Receive Date: 20201006
  Receipt Date: 20201006
  Transmission Date: 20210114
  Serious: No
  Sender: FDA-Public Use
  Company Number: None

PATIENT
  Sex: Male

DRUGS (6)
  1. CRIMOLYCIN [Concomitant]
  2. RAMPIRL [Concomitant]
  3. METFORMIN [Concomitant]
     Active Substance: METFORMIN HYDROCHLORIDE
  4. ATORVASTATIN [Concomitant]
     Active Substance: ATORVASTATIN
  5. XOLAIR [Suspect]
     Active Substance: OMALIZUMAB
     Indication: IDIOPATHIC URTICARIA
  6. LEVOCETRITI [Concomitant]

REACTIONS (3)
  - Dyspnoea [None]
  - Diarrhoea [None]
  - Loss of consciousness [None]
